FAERS Safety Report 19369913 (Version 1)
Quarter: 2021Q2

REPORT INFORMATION
  Report Type: Spontaneous
  Country: BE (occurrence: BE)
  Receive Date: 20210604
  Receipt Date: 20210604
  Transmission Date: 20210717
  Serious: Yes (Death, Hospitalization, Other)
  Sender: FDA-Public Use
  Company Number: BE-AUROBINDO-AUR-APL-2019-034230

PATIENT
  Age: 67 Year
  Sex: Female

DRUGS (9)
  1. ACETYLSALICYLIC ACID [Suspect]
     Active Substance: ASPIRIN
     Indication: INTERMITTENT CLAUDICATION
     Dosage: UNK,LOW DOSE
     Route: 065
     Dates: start: 2005, end: 2012
  2. DICLOFENAC [Suspect]
     Active Substance: DICLOFENAC
     Indication: ARTHRALGIA
     Dosage: 50 MILLIGRAM, 3 TIMES A DAY
     Route: 065
  3. DICLOFENAC [Suspect]
     Active Substance: DICLOFENAC
     Indication: MULTIVISCERAL TRANSPLANTATION
     Dosage: 150 MILLIGRAM, ONCE A DAY
     Route: 065
     Dates: start: 2012
  4. AZATHIOPRINE. [Suspect]
     Active Substance: AZATHIOPRINE
     Indication: IMMUNOSUPPRESSION
     Dosage: 25 MG, QD
     Route: 065
  5. TACROLIMUS. [Suspect]
     Active Substance: TACROLIMUS
     Indication: MULTIVISCERAL TRANSPLANTATION
     Dosage: 50 MILLIGRAM, ONCE A DAY
     Route: 065
     Dates: start: 2012
  6. AZATHIOPRINE. [Suspect]
     Active Substance: AZATHIOPRINE
     Indication: MULTIVISCERAL TRANSPLANTATION
  7. TACROLIMUS. [Suspect]
     Active Substance: TACROLIMUS
     Indication: ARTHRALGIA
  8. DICLOFENAC [Suspect]
     Active Substance: DICLOFENAC
     Indication: ARTHRALGIA
  9. TACROLIMUS. [Suspect]
     Active Substance: TACROLIMUS
     Indication: IMMUNOSUPPRESSION
     Dosage: 3 MICROGRAM
     Route: 065
     Dates: start: 2000

REACTIONS (13)
  - Graft loss [Fatal]
  - Graft thrombosis [Fatal]
  - Blood creatinine increased [Fatal]
  - Apoptosis [Fatal]
  - Complications of intestinal transplant [Fatal]
  - Contraindicated product administered [Unknown]
  - Biopsy intestine abnormal [Fatal]
  - Shock [Fatal]
  - Renal impairment [Fatal]
  - Abscess intestinal [Fatal]
  - Death [Fatal]
  - Arthralgia [Unknown]
  - Transplant rejection [Fatal]

NARRATIVE: CASE EVENT DATE: 2012
